FAERS Safety Report 4316122-X (Version None)
Quarter: 2004Q1

REPORT INFORMATION
  Report Type: 
  Country: None (occurrence: None)
  Receive Date: 20040310
  Receipt Date: 20040223
  Transmission Date: 20041129
  Serious: Yes (Death, Hospitalization, Other)
  Sender: FDA-Public Use
  Company Number: 2004008078

PATIENT
  Age: 58 Year
  Sex: Male

DRUGS (9)
  1. ATARAX [Suspect]
     Indication: ILL-DEFINED DISORDER
     Dosage: 25 MG, ORAL
     Route: 048
     Dates: start: 20030912
  2. SPIRONOLACTONE [Suspect]
     Indication: ILL-DEFINED DISORDER
     Dosage: 150 MG, ORAL
     Route: 048
     Dates: start: 20030904
  3. HEXAQUINE (THIAMINE HYDROCHLORIDE, NIAOULI OIL, QUININE BENZOATE) [Suspect]
     Indication: ILL-DEFINED DISORDER
     Dosage: ORAL
     Route: 048
     Dates: start: 20030925, end: 20031001
  4. FLUOXETINE HCL [Suspect]
     Indication: ILL-DEFINED DISORDER
     Dosage: 20 MG, ORAL
     Route: 048
     Dates: start: 20030906
  5. FUROSEMIDE [Suspect]
     Indication: ILL-DEFINED DISORDER
     Dosage: 100 MG, ORAL
     Route: 048
     Dates: start: 20030904
  6. OXAZEPAM [Suspect]
     Indication: ILL-DEFINED DISORDER
     Dosage: 25 MG, ORAL
     Route: 048
     Dates: start: 20030904
  7. MAGNESIUM OXIDE (MAGNESIUM OXIDE) [Concomitant]
  8. VITAMIN B1 AND B6 (THIAMINE, PYRIDOXINE) [Concomitant]
  9. CYANOCOBALAMIN (CYANOCOBALAMIN) [Concomitant]

REACTIONS (6)
  - DRUG ERUPTION [None]
  - ERYTHEMA [None]
  - PURPURA [None]
  - RASH ERYTHEMATOUS [None]
  - VITAMIN C DEFICIENCY [None]
  - ZINC DEFICIENCY [None]
